FAERS Safety Report 4908744-X (Version None)
Quarter: 2006Q1

REPORT INFORMATION
  Report Type: 
  Country: None (occurrence: None)
  Receive Date: 20060210
  Receipt Date: 20051107
  Transmission Date: 20060701
  Serious: No
  Sender: FDA-Public Use
  Company Number: US-GLAXOSMITHKLINE-A0581271A

PATIENT
  Age: 48 Year
  Sex: Female

DRUGS (4)
  1. PAXIL CR [Suspect]
     Indication: DEPRESSION
     Dosage: 12.5MG UNKNOWN
     Route: 048
     Dates: start: 20050101
  2. FLEXERIL [Concomitant]
  3. VICODIN [Concomitant]
  4. NSAIDS [Concomitant]

REACTIONS (2)
  - ABDOMINAL DISCOMFORT [None]
  - DYSTONIA [None]
